FAERS Safety Report 7500791-7 (Version None)
Quarter: 2011Q2

REPORT INFORMATION
  Report Type: 
  Country: None (occurrence: None)
  Receive Date: 20110524
  Receipt Date: 20110510
  Transmission Date: 20111010
  Serious: Yes (Hospitalization, Other)
  Sender: FDA-Public Use
  Company Number: PHHY2011US39962

PATIENT
  Sex: Female

DRUGS (7)
  1. ZYPREXA [Suspect]
     Indication: SCHIZOAFFECTIVE DISORDER
  2. RISPERIDONE [Concomitant]
  3. ZYPREXA [Suspect]
     Indication: SCHIZOPHRENIA
     Dosage: 20 MG, DAILY
     Dates: start: 20101001, end: 20110201
  4. PREDNISONE TAB [Concomitant]
  5. VINCRISTINE [Concomitant]
  6. CLOZARIL [Suspect]
     Indication: SCHIZOPHRENIA
     Dosage: 20 MG DAILY
  7. DOXORUBICIN HCL [Concomitant]

REACTIONS (10)
  - PSYCHOTIC DISORDER [None]
  - AGRANULOCYTOSIS [None]
  - CEREBROVASCULAR ACCIDENT [None]
  - BONE MARROW FAILURE [None]
  - NEUTROPHIL COUNT DECREASED [None]
  - PLATELET COUNT DECREASED [None]
  - WHITE BLOOD CELL COUNT DECREASED [None]
  - HAEMATOCRIT ABNORMAL [None]
  - ANAEMIA [None]
  - LYMPHOMA [None]
